FAERS Safety Report 19768192 (Version 1)
Quarter: 2021Q3

REPORT INFORMATION
  Report Type: Spontaneous
  Country: IT (occurrence: IT)
  Receive Date: 20210830
  Receipt Date: 20210830
  Transmission Date: 20211014
  Serious: Yes (Hospitalization)
  Sender: FDA-Public Use
  Company Number: IT-ELI_LILLY_AND_COMPANY-IT202108008069

PATIENT
  Age: 25 Year
  Sex: Female
  Weight: 57 kg

DRUGS (3)
  1. FLUOXETINE HYDROCHLORIDE. [Suspect]
     Active Substance: FLUOXETINE HYDROCHLORIDE
     Indication: DRUG ABUSE
     Dosage: 280 MG, UNKNOWN
     Route: 048
     Dates: start: 20210726, end: 20210726
  2. DEPAKINE CHRONO [Suspect]
     Active Substance: VALPROATE SODIUM
     Indication: DRUG ABUSE
     Dosage: 20 DOSAGE FORM, UNKNOWN
     Route: 048
     Dates: start: 20210726, end: 20210726
  3. MIRTAZAPINE. [Suspect]
     Active Substance: MIRTAZAPINE
     Indication: DRUG ABUSE
     Dosage: 900 MG, UNKNOWN
     Route: 048
     Dates: start: 20210726, end: 20210726

REACTIONS (4)
  - Presyncope [Recovering/Resolving]
  - Malaise [Recovering/Resolving]
  - Drug abuse [Recovering/Resolving]
  - Tremor [Recovering/Resolving]

NARRATIVE: CASE EVENT DATE: 20210726
